FAERS Safety Report 11679416 (Version 2)
Quarter: 2015Q4

REPORT INFORMATION
  Report Type: Spontaneous
  Country: US (occurrence: US)
  Receive Date: 20151027
  Receipt Date: 20151104
  Transmission Date: 20160304
  Serious: No
  Sender: FDA-Public Use
  Company Number: US-ELI_LILLY_AND_COMPANY-US201004006801

PATIENT
  Sex: Female

DRUGS (2)
  1. FORTEO [Suspect]
     Active Substance: TERIPARATIDE
     Indication: OSTEOPOROSIS
     Dosage: 20 UG, UNK
  2. FORTEO [Suspect]
     Active Substance: TERIPARATIDE
     Dosage: 20 UG, DAILY (1/D)

REACTIONS (10)
  - Arthropathy [Unknown]
  - Pain in extremity [Unknown]
  - Depression [Unknown]
  - Drug ineffective [Unknown]
  - Osteoarthritis [Unknown]
  - Pain [Unknown]
  - Arthritis [Unknown]
  - Neck pain [Unknown]
  - Bone density decreased [Unknown]
  - Anxiety [Unknown]
